FAERS Safety Report 21309019 (Version 2)
Quarter: 2022Q3

REPORT INFORMATION
  Report Type: Spontaneous
  Country: US (occurrence: US)
  Receive Date: 20220908
  Receipt Date: 20220921
  Transmission Date: 20221026
  Serious: Yes (Hospitalization)
  Sender: FDA-Public Use
  Company Number: US-TEVA-2022-US-2070265

PATIENT
  Age: 20 Month
  Sex: Male

DRUGS (5)
  1. METHYLPREDNISOLONE [Suspect]
     Active Substance: METHYLPREDNISOLONE
     Indication: Encephalitis autoimmune
     Dosage: 30 MG/KG DAILY;
     Route: 042
     Dates: start: 2016, end: 2016
  2. METHYLPREDNISOLONE [Suspect]
     Active Substance: METHYLPREDNISOLONE
     Dosage: 20 MG/KG DAILY;
     Route: 042
     Dates: start: 2016, end: 2016
  3. METHYLPREDNISOLONE [Suspect]
     Active Substance: METHYLPREDNISOLONE
     Dosage: 30 MG/KG DAILY;
     Route: 042
     Dates: start: 2017, end: 2017
  4. HUMAN IMMUNOGLOBULIN G [Suspect]
     Active Substance: HUMAN IMMUNOGLOBULIN G
     Indication: Encephalitis autoimmune
     Dosage: 400 MG/KG DAILY;
     Route: 042
     Dates: start: 2016, end: 2016
  5. CYCLOPHOSPHAMIDE [Concomitant]
     Active Substance: CYCLOPHOSPHAMIDE
     Indication: Encephalitis autoimmune
     Route: 065
     Dates: start: 2016

REACTIONS (3)
  - Cerebral disorder [Recovered/Resolved]
  - Atrophy [Recovered/Resolved]
  - Drug ineffective [Unknown]

NARRATIVE: CASE EVENT DATE: 20160101
